FAERS Safety Report 9921454 (Version 1)
Quarter: 2014Q1

REPORT INFORMATION
  Report Type: Spontaneous
  Country: BR (occurrence: BR)
  Receive Date: 20140225
  Receipt Date: 20140225
  Transmission Date: 20141002
  Serious: Yes (Death)
  Sender: FDA-Public Use
  Company Number: BR-SA-2014SA021216

PATIENT
  Sex: 0

DRUGS (2)
  1. LANTUS [Suspect]
     Indication: DIABETES MELLITUS
     Dosage: IU, DAILY
     Route: 065
  2. DEVICE NOS [Concomitant]
     Indication: DEVICE THERAPY

REACTIONS (1)
  - Death [Fatal]
